FAERS Safety Report 7799717-0 (Version None)
Quarter: 2011Q4

REPORT INFORMATION
  Report Type: 
  Country: None (occurrence: None)
  Receive Date: 20111006
  Receipt Date: 20110928
  Transmission Date: 20120403
  Serious: Yes (Other)
  Sender: FDA-Public Use
  Company Number: PHHY2010MX87719

PATIENT
  Age: 61 Year
  Sex: Female

DRUGS (7)
  1. AVAPRO [Concomitant]
  2. ONBREZ [Suspect]
     Indication: CHRONIC OBSTRUCTIVE PULMONARY DISEASE
     Dosage: 150 UG, QD
     Dates: start: 20101019, end: 20101215
  3. LEVOTHYROXINE SODIUM [Concomitant]
  4. ISOSORBIDE DINITRATE [Concomitant]
  5. METFORMIN HCL [Concomitant]
  6. SPIRONOLACTONE [Concomitant]
  7. CORPOTASIN CL [Concomitant]

REACTIONS (3)
  - BRONCHITIS [None]
  - INCREASED UPPER AIRWAY SECRETION [None]
  - COUGH [None]
